FAERS Safety Report 6780236-5 (Version None)
Quarter: 2010Q2

REPORT INFORMATION
  Report Type: 
  Country: None (occurrence: None)
  Receive Date: 20100618
  Receipt Date: 20100610
  Transmission Date: 20101027
  Serious: Yes (Hospitalization)
  Sender: FDA-Public Use
  Company Number: FR-ABBOTT-10P-056-0650929-00

PATIENT
  Sex: Male

DRUGS (7)
  1. MONOZECLAR TABLETS [Suspect]
     Indication: DRUG USE FOR UNKNOWN INDICATION
     Route: 048
     Dates: start: 20100414, end: 20100416
  2. OFLOXACIN [Suspect]
     Indication: DRUG USE FOR UNKNOWN INDICATION
     Route: 048
     Dates: start: 20100416, end: 20100419
  3. LERCANIDIPINE [Concomitant]
     Indication: DRUG USE FOR UNKNOWN INDICATION
  4. VALSARTAN/HYDROCHLOORTHIAZIDE [Concomitant]
     Indication: DRUG USE FOR UNKNOWN INDICATION
  5. FENOFIBRATE [Concomitant]
     Indication: DRUG USE FOR UNKNOWN INDICATION
  6. GINKOR [Concomitant]
     Indication: DRUG USE FOR UNKNOWN INDICATION
  7. ETIFOXINE [Concomitant]
     Indication: DRUG USE FOR UNKNOWN INDICATION

REACTIONS (7)
  - HEADACHE [None]
  - PAIN [None]
  - PROSTATITIS [None]
  - PURPURA [None]
  - PYREXIA [None]
  - SKIN ULCER [None]
  - VERTIGO [None]
